FAERS Safety Report 13823549 (Version 2)
Quarter: 2017Q3

REPORT INFORMATION
  Report Type: Spontaneous
  Country: US (occurrence: US)
  Receive Date: 20170802
  Receipt Date: 20170920
  Transmission Date: 20171127
  Serious: No
  Sender: FDA-Public Use
  Company Number: US-CELGENEUS-USA-20170709053

PATIENT

DRUGS (2)
  1. GALINPEPIMUT-S (GPS) [Suspect]
     Active Substance: GALINPEPIMUT-S
     Indication: PLASMA CELL MYELOMA
     Route: 058
  2. REVLIMID [Suspect]
     Active Substance: LENALIDOMIDE
     Indication: PLASMA CELL MYELOMA
     Route: 048

REACTIONS (1)
  - Injection site nodule [Recovered/Resolved]
